FAERS Safety Report 6030998-X (Version None)
Quarter: 2009Q1

REPORT INFORMATION
  Report Type: 
  Country: None (occurrence: None)
  Receive Date: 20090106
  Receipt Date: 20090106
  Transmission Date: 20090719
  Serious: Yes (Other)
  Sender: FDA-Public Use
  Company Number: None

PATIENT
  Sex: Female
  Weight: 74.3899 kg

DRUGS (1)
  1. NIFEDIPINE ER 60MG [Suspect]
     Indication: POOR PERIPHERAL CIRCULATION
     Dosage: 1 TAB Q AM DAILY PO
     Route: 048
     Dates: start: 20081231, end: 20081231

REACTIONS (1)
  - EXTRAPYRAMIDAL DISORDER [None]
